FAERS Safety Report 25149354 (Version 1)
Quarter: 2025Q2

REPORT INFORMATION
  Report Type: Spontaneous
  Country: US (occurrence: US)
  Receive Date: 20250402
  Receipt Date: 20250402
  Transmission Date: 20250717
  Serious: Yes (Other)
  Sender: MYLAN
  Company Number: US-MYLANLABS-2025M1026666

PATIENT
  Age: 88 Year
  Sex: Male

DRUGS (6)
  1. MERCAPTOPURINE [Suspect]
     Active Substance: MERCAPTOPURINE
     Indication: Acute lymphocytic leukaemia
  2. MERCAPTOPURINE [Suspect]
     Active Substance: MERCAPTOPURINE
  3. PREDNISONE [Suspect]
     Active Substance: PREDNISONE
     Indication: Acute lymphocytic leukaemia
  4. PREDNISONE [Suspect]
     Active Substance: PREDNISONE
  5. AZACITIDINE [Suspect]
     Active Substance: AZACITIDINE
     Indication: Acute lymphocytic leukaemia
  6. AZACITIDINE [Suspect]
     Active Substance: AZACITIDINE

REACTIONS (2)
  - Iron overload [Recovering/Resolving]
  - Cardiomyopathy [Recovering/Resolving]
